FAERS Safety Report 22209631 (Version 1)
Quarter: 2023Q2

REPORT INFORMATION
  Report Type: Other
  Country: US (occurrence: US)
  Receive Date: 20230414
  Receipt Date: 20230414
  Transmission Date: 20230721
  Serious: Yes (Hospitalization)
  Sender: FDA-Public Use
  Company Number: US-GBT-021600

PATIENT
  Sex: Female
  Weight: 96.162 kg

DRUGS (1)
  1. OXBRYTA [Suspect]
     Active Substance: VOXELOTOR
     Indication: Product used for unknown indication

REACTIONS (2)
  - Acute chest syndrome [Unknown]
  - Sickle cell anaemia with crisis [Unknown]
